FAERS Safety Report 5368564-1 (Version None)
Quarter: 2007Q2

REPORT INFORMATION
  Report Type: 
  Country: None (occurrence: None)
  Receive Date: 20070620
  Receipt Date: 20070609
  Transmission Date: 20071010
  Serious: Yes (Other)
  Sender: FDA-Public Use
  Company Number: DSU-2007-00282

PATIENT
  Age: 38 Year
  Sex: Male

DRUGS (1)
  1. OLMESARTAN MEDOXOMIL [Suspect]
     Indication: HYPERTENSION
     Dosage: 20 MG (10 MG, QD) , PER ORAL
     Route: 048
     Dates: start: 20070601

REACTIONS (1)
  - HYPOTENSION [None]
